FAERS Safety Report 4405227-0 (Version None)
Quarter: 2004Q3

REPORT INFORMATION
  Report Type: 
  Country: None (occurrence: None)
  Receive Date: 20040722
  Receipt Date: 20040722
  Transmission Date: 20050211
  Serious: Yes (Other)
  Sender: FDA-Public Use
  Company Number: None

PATIENT
  Age: 63 Year
  Sex: Female

DRUGS (6)
  1. TEQUIN [Suspect]
     Indication: BRONCHITIS ACUTE
     Dosage: 400 MG DAILY ORAL
     Route: 048
     Dates: start: 20040406, end: 20040416
  2. METFORMIN HCL [Concomitant]
  3. ZESTRIL [Concomitant]
  4. GLYBURIDE [Concomitant]
  5. ZOCOR [Concomitant]
  6. ACIPHEX [Concomitant]

REACTIONS (1)
  - BLOOD GLUCOSE DECREASED [None]
